FAERS Safety Report 7328441-3 (Version None)
Quarter: 2011Q1

REPORT INFORMATION
  Report Type: 
  Country: None (occurrence: None)
  Receive Date: 20110303
  Receipt Date: 20110222
  Transmission Date: 20110831
  Serious: Yes (Hospitalization, Disabling)
  Sender: FDA-Public Use
  Company Number: BR-ASTRAZENECA-2010SE31582

PATIENT
  Age: 61 Year
  Sex: Female
  Weight: 104 kg

DRUGS (4)
  1. SEROQUEL [Suspect]
     Route: 048
     Dates: start: 20100601
  2. SEROQUEL [Suspect]
     Indication: DEPRESSION
     Route: 048
     Dates: start: 20090101, end: 20100501
  3. LEXOTAN [Concomitant]
     Route: 048
  4. PURAN T4 [Concomitant]
     Indication: HYPOTHYROIDISM
     Route: 048

REACTIONS (6)
  - DYSGEUSIA [None]
  - GAIT DISTURBANCE [None]
  - ANXIETY [None]
  - SPINAL FRACTURE [None]
  - LABYRINTHITIS [None]
  - WEIGHT INCREASED [None]
